FAERS Safety Report 13461829 (Version 1)
Quarter: 2017Q2

REPORT INFORMATION
  Report Type: Spontaneous
  Country: US (occurrence: US)
  Receive Date: 20170419
  Receipt Date: 20170419
  Transmission Date: 20170830
  Serious: Yes (Other)
  Sender: FDA-Public Use
  Company Number: None

PATIENT
  Age: 33 Year
  Sex: Male

DRUGS (1)
  1. ENTYVIO [Suspect]
     Active Substance: VEDOLIZUMAB
     Indication: COLITIS ULCERATIVE
     Dosage: 300 MG Q8W IV
     Route: 042
     Dates: start: 20170407

REACTIONS (2)
  - Dyspnoea [None]
  - Lower respiratory tract congestion [None]

NARRATIVE: CASE EVENT DATE: 20170411
